FAERS Safety Report 13587515 (Version 1)
Quarter: 2017Q2

REPORT INFORMATION
  Report Type: Spontaneous
  Country: US (occurrence: US)
  Receive Date: 20170526
  Receipt Date: 20170526
  Transmission Date: 20170830
  Serious: No
  Sender: FDA-Public Use
  Company Number: None

PATIENT
  Age: 68 Year
  Sex: Female
  Weight: 83.25 kg

DRUGS (9)
  1. AMLODIPINE [Concomitant]
     Active Substance: AMLODIPINE BESYLATE
  2. MORPHINE EX [Concomitant]
  3. LUMIGAN [Concomitant]
     Active Substance: BIMATOPROST
  4. BENAZEPRIL [Concomitant]
     Active Substance: BENAZEPRIL HYDROCHLORIDE
  5. EUCRISA [Suspect]
     Active Substance: CRISABOROLE
     Indication: RASH
     Dosage: ?          QUANTITY:1 TUBE;?
     Route: 061
  6. MORPHINE IR [Concomitant]
     Active Substance: MORPHINE
  7. LUNESTA [Concomitant]
     Active Substance: ESZOPICLONE
  8. AZOPT [Concomitant]
     Active Substance: BRINZOLAMIDE
  9. MIRALAX [Concomitant]
     Active Substance: POLYETHYLENE GLYCOL 3350

REACTIONS (1)
  - Application site pain [None]

NARRATIVE: CASE EVENT DATE: 20170508
